FAERS Safety Report 9413891 (Version 1)
Quarter: 2013Q3

REPORT INFORMATION
  Report Type: Report from Study
  Country: BE (occurrence: BE)
  Receive Date: 20130723
  Receipt Date: 20130723
  Transmission Date: 20140515
  Serious: Yes (Hospitalization)
  Sender: FDA-Public Use
  Company Number: BE-ROCHE-1248913

PATIENT
  Age: 73 Year
  Sex: Male
  Weight: 44 kg

DRUGS (6)
  1. BEVACIZUMAB [Suspect]
     Indication: COLORECTAL CANCER METASTATIC
     Route: 042
     Dates: start: 20120214
  2. CAPECITABINE [Suspect]
     Indication: COLORECTAL CANCER METASTATIC
     Route: 048
     Dates: start: 10120214
  3. OXALIPLATIN [Suspect]
     Indication: COLORECTAL CANCER METASTATIC
     Route: 042
     Dates: start: 20120925
  4. ALDACTONE (BELGIUM) [Concomitant]
     Indication: HYPERTENSION
     Route: 048
  5. TAMSULOSINE [Concomitant]
     Indication: URINARY INCONTINENCE
     Route: 048
     Dates: start: 200812
  6. ULTRA K [Concomitant]
     Route: 048
     Dates: start: 200812

REACTIONS (2)
  - Hyperthermia [Recovered/Resolved]
  - Chills [Recovered/Resolved]
